FAERS Safety Report 8859271 (Version 1)
Quarter: 2012Q4

REPORT INFORMATION
  Report Type: 
  Country: DE (occurrence: DE)
  Receive Date: 20121024
  Receipt Date: 20121024
  Transmission Date: 20130627
  Serious: Yes (Other)
  Sender: FDA-Public Use
  Company Number: DE-UCBSA-069154

PATIENT
  Age: 45 Year
  Sex: Female
  Weight: 58 kg

DRUGS (2)
  1. KEPPRA [Suspect]
     Dosage: TOTAL AMOUNT: 3000 MG, EVENING DOSE TWICE
     Route: 048
     Dates: start: 20121016
  2. LAMICTAL [Suspect]
     Dosage: TOTAL AMOUNT:300 MG, EVENING DOSE TWICE
     Route: 048
     Dates: start: 20121016

REACTIONS (1)
  - Accidental exposure to product [Unknown]
